FAERS Safety Report 13824153 (Version 1)
Quarter: 2017Q3

REPORT INFORMATION
  Report Type: Spontaneous
  Country: US (occurrence: US)
  Receive Date: 20170802
  Receipt Date: 20170802
  Transmission Date: 20171127
  Serious: Yes (Death)
  Sender: FDA-Public Use
  Company Number: US-ROCHE-1971252

PATIENT
  Age: 103 Year
  Sex: Female

DRUGS (1)
  1. ERIVEDGE [Suspect]
     Active Substance: VISMODEGIB
     Indication: NEOPLASM MALIGNANT
     Dosage: ONCE DAILY MONDAY THROUGH FRIDAY
     Route: 048
     Dates: start: 20160826, end: 20170707

REACTIONS (1)
  - Death [Fatal]

NARRATIVE: CASE EVENT DATE: 20170722
